FAERS Safety Report 5342519-5 (Version None)
Quarter: 2007Q2

REPORT INFORMATION
  Report Type: 
  Country: None (occurrence: None)
  Receive Date: 20070416
  Receipt Date: 20070302
  Transmission Date: 20071010
  Serious: No
  Sender: FDA-Public Use
  Company Number: 2007SP000747

PATIENT
  Age: 75 Year
  Sex: Male
  Weight: 102.0593 kg

DRUGS (6)
  1. LUNESTA [Suspect]
     Dosage: SEE IMAGE
     Route: 048
     Dates: start: 20060701, end: 20070201
  2. LUNESTA [Suspect]
     Dosage: SEE IMAGE
     Route: 048
     Dates: start: 20070201
  3. OMEGA 3 [Concomitant]
  4. CITALOPRAM HYDROBROMIDE [Concomitant]
  5. NAMENDA [Concomitant]
  6. ARICEPT [Concomitant]

REACTIONS (1)
  - INSOMNIA [None]
